FAERS Safety Report 5318257-1 (Version None)
Quarter: 2007Q2

REPORT INFORMATION
  Report Type: 
  Country: None (occurrence: None)
  Receive Date: 20070507
  Receipt Date: 20070430
  Transmission Date: 20071010
  Serious: Yes (Hospitalization)
  Sender: FDA-Public Use
  Company Number: PHEH2007US06662

PATIENT
  Age: 60 Year
  Sex: Female

DRUGS (1)
  1. ZELNORM [Suspect]
     Indication: IRRITABLE BOWEL SYNDROME
     Dosage: 6 MG, QD
     Route: 048
     Dates: start: 20060201, end: 20070330

REACTIONS (6)
  - ANGIOGRAM ABNORMAL [None]
  - ANIMAL BITE [None]
  - CARDIAC STRESS TEST NORMAL [None]
  - HEART SOUNDS ABNORMAL [None]
  - INFECTION [None]
  - MYOCARDIAL INFARCTION [None]
